APPROVED DRUG PRODUCT: INDOMETHACIN
Active Ingredient: INDOMETHACIN
Strength: 25MG
Dosage Form/Route: CAPSULE;ORAL
Application: A070529 | Product #001
Applicant: WATSON LABORATORIES INC
Approved: Oct 18, 1985 | RLD: No | RS: No | Type: DISCN